FAERS Safety Report 14669950 (Version 1)
Quarter: 2018Q1

REPORT INFORMATION
  Report Type: Spontaneous
  Country: ES (occurrence: ES)
  Receive Date: 20180322
  Receipt Date: 20180322
  Transmission Date: 20180509
  Serious: Yes (Other)
  Sender: FDA-Public Use
  Company Number: ES-TEVA-2018-ES-870401

PATIENT
  Age: 79 Year
  Sex: Female

DRUGS (9)
  1. ENOXAPARINA (2482A) [Concomitant]
     Dosage: 40 MG EVERY 24 HOURS
     Dates: start: 20170122, end: 20170306
  2. ENALAPRIL (2142A) [Concomitant]
     Active Substance: ENALAPRIL
     Dosage: 20 MG EVERY 24 HOURS WITH MODIFICATION TO 20 MG EVERY 12 HOURS AND 10 MG EVERY 12 HOURS AFTERWARD
     Dates: start: 20170126, end: 20170721
  3. PARACETAMOL (12A) [Concomitant]
     Active Substance: ACETAMINOPHEN
     Dosage: 1 GR EVERY 8 HOURS
     Dates: start: 20161227, end: 20170329
  4. IPRATROPIO BROMURO (1067BR) [Concomitant]
     Dosage: 500 MCG EVERY 8 HOURS
     Dates: start: 20170123, end: 20170308
  5. METAMIZOL (111A) [Concomitant]
     Active Substance: METAMIZOL SODIUM
     Dosage: 2 GR EVERY 8 HOURS
     Dates: start: 20170217, end: 20170321
  6. FUROSEMIDA (1615A) [Suspect]
     Active Substance: FUROSEMIDE
     Dosage: 10 MG EVERY 12 HOURS ALTERNATING WITH GUIDELINES EVERY 6 AND 8 HOURS
     Dates: start: 20170105, end: 20170305
  7. SALBUTAMOL (2297A) [Concomitant]
     Dosage: 0,5 ML EVERY 8 HOURS
     Dates: start: 20170123, end: 20170308
  8. CAPTOPRIL (3871A) [Concomitant]
     Dosage: 50 MG SI SPECIFIED
     Dates: start: 20170204, end: 20170321
  9. NIFEDIPINO (3253A) [Concomitant]
     Dosage: 20 MG EVERY 8 HOURS WITH SUBSEQUENT REDUCTION EVERY 12 HOURS
     Dates: start: 20170103, end: 20170316

REACTIONS (2)
  - Hypokalaemia [Recovered/Resolved]
  - Metabolic acidosis [Recovered/Resolved]

NARRATIVE: CASE EVENT DATE: 20170303
